FAERS Safety Report 7824981-9 (Version None)
Quarter: 2011Q4

REPORT INFORMATION
  Report Type: 
  Country: None (occurrence: None)
  Receive Date: 20111019
  Receipt Date: 20111010
  Transmission Date: 20120403
  Serious: Yes (Hospitalization, Other)
  Sender: FDA-Public Use
  Company Number: US-MERCK-1103USA01556

PATIENT
  Age: 59 Year
  Sex: Female
  Weight: 80 kg

DRUGS (14)
  1. PROGESTERONE [Concomitant]
     Route: 048
     Dates: start: 19860101
  2. CALCIUM (UNSPECIFIED) [Concomitant]
     Route: 048
     Dates: start: 19890101
  3. FOSAMAX [Suspect]
     Indication: OSTEOPOROSIS
     Route: 048
     Dates: start: 19951001, end: 20011109
  4. PROVERA [Concomitant]
     Route: 048
     Dates: start: 19961119
  5. FOSAMAX PLUS D [Suspect]
     Route: 048
  6. ESTROGENS (UNSPECIFIED) [Concomitant]
     Route: 048
     Dates: start: 19890101
  7. FOSAMAX [Suspect]
     Route: 048
  8. SYNTHROID [Concomitant]
     Route: 048
     Dates: start: 19940101
  9. VITAMIN D (UNSPECIFIED) [Concomitant]
     Route: 048
     Dates: start: 19890101
  10. ESTRACE [Concomitant]
     Route: 048
     Dates: start: 19961101
  11. FOSAMAX [Suspect]
     Route: 048
     Dates: start: 20011101, end: 20060620
  12. MAGNESIUM (UNSPECIFIED) [Concomitant]
     Route: 048
     Dates: start: 19890101
  13. VITAMINS (UNSPECIFIED) [Concomitant]
     Route: 048
  14. MIACALCIN [Concomitant]
     Route: 048

REACTIONS (25)
  - FEMUR FRACTURE [None]
  - FRACTURE NONUNION [None]
  - POST PROCEDURAL COMPLICATION [None]
  - GASTROOESOPHAGEAL REFLUX DISEASE [None]
  - HYPERTHYROIDISM [None]
  - BONE METABOLISM DISORDER [None]
  - TOOTH DISORDER [None]
  - SPINAL OSTEOARTHRITIS [None]
  - PEPTIC ULCER [None]
  - OVERDOSE [None]
  - LUMBAR SPINAL STENOSIS [None]
  - BLOOD DISORDER [None]
  - STRESS FRACTURE [None]
  - FOOT FRACTURE [None]
  - FATIGUE [None]
  - POST HERPETIC NEURALGIA [None]
  - FALL [None]
  - APHASIA [None]
  - DEVICE FAILURE [None]
  - ARTHRALGIA [None]
  - HYPOTENSION [None]
  - ADVERSE EVENT [None]
  - ARTHROPATHY [None]
  - BLOOD CHOLESTEROL INCREASED [None]
  - HERPES ZOSTER [None]
